FAERS Safety Report 25990264 (Version 1)
Quarter: 2025Q4

REPORT INFORMATION
  Report Type: Spontaneous
  Country: US (occurrence: None)
  Receive Date: 20251103
  Receipt Date: 20251103
  Transmission Date: 20260118
  Serious: Yes (Hospitalization)
  Sender: FDA-CTU
  Company Number: None

PATIENT
  Sex: Female

DRUGS (11)
  1. MYCOPHENOLIC ACID [Suspect]
     Active Substance: MYCOPHENOLIC ACID
     Indication: Systemic lupus erythematosus
     Dosage: TAKE 1 TABLET (360 MG TOTAL) BY MOUTH 3 (THREE) TIMES DAILY?
     Route: 048
     Dates: start: 20220122
  2. BENLYSTA INJ 200MG/ML [Concomitant]
  3. CLOBETASOL OIN 0.05% [Concomitant]
  4. DEPO-PROVERA INJ 150MG/ML [Concomitant]
  5. DEXAMETHASONE [Concomitant]
     Active Substance: DEXAMETHASONE
  6. ESCITALOPRAM [Concomitant]
     Active Substance: ESCITALOPRAM OXALATE
  7. ESCITALOPRAM [Concomitant]
     Active Substance: ESCITALOPRAM OXALATE
  8. ESCITALOPRAM TAB 5MG [Concomitant]
  9. FOLIC ACID TAB 1MG [Concomitant]
  10. HALOBETASOL OIN 0.05% [Concomitant]
  11. HYDROXYCHLOROQUINE [Concomitant]
     Active Substance: HYDROXYCHLOROQUINE

REACTIONS (2)
  - Systemic lupus erythematosus [None]
  - Renal disorder [None]
